FAERS Safety Report 9622472 (Version 2)
Quarter: 2013Q4

REPORT INFORMATION
  Report Type: Spontaneous
  Country: US (occurrence: US)
  Receive Date: 20131015
  Receipt Date: 20131015
  Transmission Date: 20140711
  Serious: No
  Sender: FDA-Public Use
  Company Number: US-PURDUE-USA-2012-0086825

PATIENT
  Age: 40 Year
  Sex: Female
  Weight: 124.72 kg

DRUGS (4)
  1. BUTRANS [Suspect]
     Indication: PAIN
     Dosage: 5 MCG/HR, UNK
     Route: 062
     Dates: start: 20120414, end: 20120420
  2. BUTRANS [Suspect]
     Indication: BACK PAIN
  3. BUTRANS [Suspect]
     Indication: ARTHRITIS
  4. BUTRANS [Suspect]
     Indication: INTERVERTEBRAL DISC DEGENERATION

REACTIONS (5)
  - Disturbance in attention [Recovered/Resolved]
  - Feeling abnormal [Recovered/Resolved]
  - Application site rash [Recovered/Resolved]
  - Application site pruritus [Recovered/Resolved]
  - Unevaluable event [Unknown]
